FAERS Safety Report 7572320-3 (Version None)
Quarter: 2011Q2

REPORT INFORMATION
  Report Type: 
  Country: None (occurrence: None)
  Receive Date: 20110624
  Receipt Date: 20110620
  Transmission Date: 20111010
  Serious: Yes (Life-Threatening, Hospitalization)
  Sender: FDA-Public Use
  Company Number: PHHY2011US50794

PATIENT
  Sex: Male

DRUGS (7)
  1. EXJADE [Suspect]
     Dosage: 1500 MG, UNK
     Route: 048
     Dates: start: 20110501, end: 20110601
  2. KEFLEX [Concomitant]
  3. COUMADIN [Concomitant]
  4. VITAMIN B-12 [Concomitant]
  5. EXJADE [Suspect]
     Dosage: 1500 MG, QD
     Route: 048
     Dates: start: 20050101, end: 20070101
  6. EXJADE [Suspect]
     Dosage: 2000 MG, QD
     Route: 048
     Dates: start: 20070101, end: 20080516
  7. PREDNISONE [Concomitant]
     Dosage: UNK

REACTIONS (4)
  - PNEUMONIA [None]
  - BLOOD COUNT ABNORMAL [None]
  - KIDNEY INFECTION [None]
  - NASOPHARYNGITIS [None]
